FAERS Safety Report 7458606-1 (Version None)
Quarter: 2011Q2

REPORT INFORMATION
  Report Type: 
  Country: None (occurrence: None)
  Receive Date: 20110503
  Receipt Date: 20110503
  Transmission Date: 20111010
  Serious: Yes (Life-Threatening, Hospitalization)
  Sender: FDA-Public Use
  Company Number: None

PATIENT
  Sex: Male
  Weight: 178 kg

DRUGS (1)
  1. OXALIPLATIN [Suspect]
     Indication: COLON CANCER
     Dosage: 290 MG ONCE OVER 2 HOURS IV
     Route: 042
     Dates: start: 20110406, end: 20110419

REACTIONS (4)
  - WHEEZING [None]
  - DYSPNOEA [None]
  - VOMITING [None]
  - DYSAESTHESIA PHARYNX [None]
